FAERS Safety Report 15377051 (Version 1)
Quarter: 2018Q3

REPORT INFORMATION
  Report Type: Spontaneous
  Country: US (occurrence: US)
  Receive Date: 20180913
  Receipt Date: 20180913
  Transmission Date: 20181010
  Serious: No
  Sender: FDA-Public Use
  Company Number: US-009507513-1808USA009747

PATIENT
  Age: 81 Year
  Sex: Female

DRUGS (1)
  1. ASMANEX [Suspect]
     Active Substance: MOMETASONE FUROATE
     Dosage: 2 PUFFS EVERY MORNING
     Route: 048
     Dates: start: 20180818

REACTIONS (3)
  - Product quality issue [Unknown]
  - Incorrect dose administered [Unknown]
  - No adverse event [Unknown]

NARRATIVE: CASE EVENT DATE: 20180818
